FAERS Safety Report 7892747-X (Version None)
Quarter: 2011Q4

REPORT INFORMATION
  Report Type: 
  Country: None (occurrence: None)
  Receive Date: 20111104
  Receipt Date: 20111028
  Transmission Date: 20120403
  Serious: Yes (Hospitalization, Disabling, Other)
  Sender: FDA-Public Use
  Company Number: JP-B.I. PHARMACEUTICALS,INC./RIDGEFIELD-2011-BP-22459NB

PATIENT
  Sex: Female
  Weight: 59.4 kg

DRUGS (7)
  1. PIROLACTON [Concomitant]
     Indication: HYPERTENSION
     Dosage: 25 MG
     Route: 048
     Dates: start: 20110618, end: 20110822
  2. FUROSEMIDE [Concomitant]
     Indication: HYPERTENSION
     Dosage: 40 MG
     Route: 048
     Dates: start: 20110523, end: 20110618
  3. LENDEM D [Concomitant]
     Indication: INSOMNIA
     Dosage: 0.05 MG
     Route: 048
     Dates: start: 20090529
  4. OMEPRAZOLE [Concomitant]
     Indication: GASTROOESOPHAGEAL REFLUX DISEASE
     Dosage: 20 MG
     Route: 048
  5. PRADAXA [Suspect]
     Indication: ATRIAL FIBRILLATION
     Dosage: 220 MG
     Route: 048
     Dates: start: 20110618, end: 20110830
  6. DILTIAZEM HCL [Concomitant]
     Indication: HYPERTENSION
     Dosage: 200 MG
     Route: 048
     Dates: start: 20080707
  7. ASPIRIN [Suspect]
     Indication: ANGINA PECTORIS
     Dosage: 100 MG
     Route: 048
     Dates: start: 20110707, end: 20110829

REACTIONS (6)
  - SPINAL CORD HAEMORRHAGE [None]
  - GAIT DISTURBANCE [None]
  - FALL [None]
  - DELUSION [None]
  - SPONDYLOLISTHESIS [None]
  - DIPLEGIA [None]
